FAERS Safety Report 23423469 (Version 2)
Quarter: 2024Q1

REPORT INFORMATION
  Report Type: Spontaneous
  Country: US (occurrence: US)
  Receive Date: 20240119
  Receipt Date: 20240125
  Transmission Date: 20240409
  Serious: Yes (Hospitalization, Other)
  Sender: FDA-Public Use
  Company Number: US-Covis Pharma Europe B.V.-2024COV00068

PATIENT
  Age: 65 Year
  Sex: Female

DRUGS (1)
  1. ALVESCO [Suspect]
     Active Substance: CICLESONIDE
     Indication: Asthma
     Dosage: 1 PUFF EVERY NIGHT, OCCASSIONALLY 2 PUFF EVERY NIGHT
     Route: 055

REACTIONS (4)
  - Cerebrovascular accident [Not Recovered/Not Resolved]
  - Extra dose administered [Unknown]
  - Product dose omission issue [Unknown]
  - Incorrect dose administered [Unknown]

NARRATIVE: CASE EVENT DATE: 20230101
